FAERS Safety Report 9393472 (Version 1)
Quarter: 2013Q3

REPORT INFORMATION
  Report Type: Spontaneous
  Country: CH (occurrence: CH)
  Receive Date: 20130710
  Receipt Date: 20130710
  Transmission Date: 20140515
  Serious: Yes (Other)
  Sender: FDA-Public Use
  Company Number: PHHY2013CH071122

PATIENT
  Age: 29 Year
  Sex: Female
  Weight: 67 kg

DRUGS (3)
  1. CO-AMOXICILLIN SANDOZ [Suspect]
     Indication: ACUTE SINUSITIS
     Dosage: 1 DF, BID
     Route: 048
     Dates: start: 20130408, end: 20130410
  2. MEFENACID [Concomitant]
     Route: 048
  3. RINOSEDIN [Concomitant]
     Route: 045

REACTIONS (1)
  - Neck pain [Not Recovered/Not Resolved]
